FAERS Safety Report 15703229 (Version 4)
Quarter: 2019Q1

REPORT INFORMATION
  Report Type: Spontaneous
  Country: IT (occurrence: IT)
  Receive Date: 20181210
  Receipt Date: 20190203
  Transmission Date: 20190417
  Serious: Yes (Death, Hospitalization, Other)
  Sender: FDA-Public Use
  Company Number: IT-AUROBINDO-AUR-APL-2018-059109

PATIENT

DRUGS (7)
  1. PRAMIPEXOLE. [Suspect]
     Active Substance: PRAMIPEXOLE
     Indication: ON AND OFF PHENOMENON
  2. CARBIDOPA;LEVODOPA [Concomitant]
     Active Substance: CARBIDOPA\LEVODOPA
     Indication: ON AND OFF PHENOMENON
     Dosage: 1200 MILLIGRAM, DAILY
     Route: 065
  3. PRAMIPEXOLE. [Suspect]
     Active Substance: PRAMIPEXOLE
     Indication: PARKINSON^S DISEASE
     Dosage: 1.05 MILLIGRAM, DAILY
     Route: 065
  4. CARBIDOPA;LEVODOPA [Concomitant]
     Active Substance: CARBIDOPA\LEVODOPA
     Indication: DYSKINESIA
  5. ZOLPIDEM [Concomitant]
     Active Substance: ZOLPIDEM\ZOLPIDEM TARTRATE
     Indication: ON AND OFF PHENOMENON
     Dosage: 10 MILLIGRAM, DAILY
     Route: 065
  6. CLOZAPINE. [Concomitant]
     Active Substance: CLOZAPINE
     Indication: HALLUCINATION, VISUAL
     Dosage: 25 MILLIGRAM, DAILY
     Route: 065
  7. VENLAFAXINE [Concomitant]
     Active Substance: VENLAFAXINE HYDROCHLORIDE
     Indication: ON AND OFF PHENOMENON
     Dosage: 75 MILLIGRAM, DAILY
     Route: 065

REACTIONS (13)
  - Dehydration [Unknown]
  - Pyrexia [Unknown]
  - Hypernatraemia [Unknown]
  - Hallucination, visual [Recovered/Resolved]
  - Hypercreatinaemia [Unknown]
  - Tachycardia [Unknown]
  - Stupor [Unknown]
  - Parkinsonism hyperpyrexia syndrome [Fatal]
  - Orthostatic hypotension [Recovered/Resolved]
  - Dyskinesia [Unknown]
  - Acute pulmonary oedema [Fatal]
  - Respiratory distress [Unknown]
  - Leukocytosis [Unknown]

NARRATIVE: CASE EVENT DATE: 201607
